FAERS Safety Report 10330303 (Version 1)
Quarter: 2014Q3

REPORT INFORMATION
  Report Type: Report from Study
  Country: GB (occurrence: GB)
  Receive Date: 20140722
  Receipt Date: 20140722
  Transmission Date: 20150326
  Serious: Yes (Death)
  Sender: FDA-Public Use
  Company Number: GB-ROCHE-1437388

PATIENT
  Age: 74 Year
  Sex: Male

DRUGS (9)
  1. DEXAMETHASONE. [Concomitant]
     Active Substance: DEXAMETHASONE
     Route: 048
     Dates: end: 20130315
  2. IRINOTECAN [Concomitant]
     Active Substance: IRINOTECAN
     Indication: GASTRIC CANCER
     Route: 042
     Dates: end: 20130315
  3. DEXTROSE, SODIUM CHLORIDE, AND POTASSIUM CHLORIDE [Concomitant]
     Active Substance: DEXTROSE\POTASSIUM CHLORIDE\SODIUM CHLORIDE
     Indication: GASTRIC CANCER
     Route: 042
     Dates: end: 20130315
  4. DOMPERIDONE [Concomitant]
     Active Substance: DOMPERIDONE
     Indication: GASTRIC CANCER
     Route: 048
     Dates: end: 20130315
  5. ATROPINE SULPHATE [Concomitant]
     Indication: GASTRIC CANCER
     Route: 058
     Dates: end: 20130315
  6. LOPERAMIDE [Concomitant]
     Active Substance: LOPERAMIDE
     Indication: GASTRIC CANCER
     Route: 048
     Dates: end: 20130315
  7. CAPECITABINE [Suspect]
     Active Substance: CAPECITABINE
     Indication: GASTRIC CANCER
     Route: 048
     Dates: end: 20130315
  8. DEXAMETHASONE. [Concomitant]
     Active Substance: DEXAMETHASONE
     Indication: GASTRIC CANCER
     Route: 048
     Dates: end: 20130315
  9. ONDANSETRON [Concomitant]
     Active Substance: ONDANSETRON
     Indication: GASTRIC CANCER
     Route: 048
     Dates: end: 20130315

REACTIONS (1)
  - Death [Fatal]
